FAERS Safety Report 4456520-7 (Version None)
Quarter: 2004Q3

REPORT INFORMATION
  Report Type: 
  Country: None (occurrence: None)
  Receive Date: 20040923
  Receipt Date: 20040914
  Transmission Date: 20050211
  Serious: Yes (Hospitalization, Other)
  Sender: FDA-Public Use
  Company Number: US-JNJFOC-20040801803

PATIENT
  Sex: Female

DRUGS (11)
  1. REMICADE [Suspect]
     Route: 042
  2. REMICADE [Suspect]
     Route: 042
  3. REMICADE [Suspect]
     Route: 042
  4. REMICADE [Suspect]
     Route: 042
  5. REMICADE [Suspect]
     Indication: RHEUMATOID ARTHRITIS
     Route: 042
  6. BENADRYL [Concomitant]
     Route: 042
     Dates: start: 20040101
  7. FOSAMAX [Concomitant]
     Indication: OSTEOPENIA
     Dosage: THERAPY DATES REPORTED AS ^YEARS^
     Route: 049
  8. PREDNISONE [Concomitant]
     Indication: RHEUMATOID ARTHRITIS
     Dosage: THERAPY DATES REPORTED AS ^YEARS^
     Route: 049
  9. XALATAN [Concomitant]
     Route: 047
  10. COSOPT [Concomitant]
     Route: 047
  11. COSOPT [Concomitant]
     Route: 047

REACTIONS (14)
  - AORTIC STENOSIS [None]
  - BRADYCARDIA [None]
  - BUNDLE BRANCH BLOCK RIGHT [None]
  - CHEST PAIN [None]
  - COLECTOMY PARTIAL [None]
  - COUGH [None]
  - DYSPNOEA [None]
  - ELECTROCARDIOGRAM T WAVE INVERSION [None]
  - FACE OEDEMA [None]
  - INFUSION RELATED REACTION [None]
  - INTESTINAL RESECTION [None]
  - LACRIMATION INCREASED [None]
  - MITRAL VALVE INCOMPETENCE [None]
  - RASH [None]
